FAERS Safety Report 5917842-3 (Version None)
Quarter: 2008Q4

REPORT INFORMATION
  Report Type: 
  Country: None (occurrence: None)
  Receive Date: 20081014
  Receipt Date: 20081008
  Transmission Date: 20090506
  Serious: Yes (Death)
  Sender: FDA-Public Use
  Company Number: JP-ASTRAZENECA-2008AP07804

PATIENT
  Age: 30 Year
  Sex: Female

DRUGS (8)
  1. SEROQUEL [Suspect]
     Indication: SCHIZOPHRENIA
     Dosage: 3000MG OVERDOSE
     Route: 048
  2. ANAFRANIL [Suspect]
     Route: 048
  3. BENZALIN [Suspect]
     Route: 048
  4. SOLANAX [Suspect]
     Route: 048
  5. RISUMIC [Suspect]
     Route: 048
  6. SENNOSIDE [Suspect]
     Route: 048
  7. FLUNITRAZEPAM [Suspect]
     Route: 048
  8. LAXOBERON [Suspect]
     Route: 048

REACTIONS (1)
  - COMPLETED SUICIDE [None]
